FAERS Safety Report 5634454-X (Version None)
Quarter: 2008Q1

REPORT INFORMATION
  Report Type: 
  Country: None (occurrence: None)
  Receive Date: 20080131
  Receipt Date: 20071205
  Transmission Date: 20080703
  Serious: Yes (Other)
  Sender: FDA-Public Use
  Company Number: US-JNJFOC-20071202044

PATIENT
  Sex: Male

DRUGS (1)
  1. ERTACZO [Suspect]
     Indication: TINEA PEDIS
     Dates: start: 20071201, end: 20071201

REACTIONS (1)
  - DERMATITIS CONTACT [None]
